FAERS Safety Report 15997356 (Version 3)
Quarter: 2020Q2

REPORT INFORMATION
  Report Type: Report from Study
  Country: US (occurrence: US)
  Receive Date: 20190222
  Receipt Date: 20200618
  Transmission Date: 20200713
  Serious: Yes (Hospitalization, Other)
  Sender: FDA-Public Use
  Company Number: US-ARIAD PHARMACEUTICALS, INC-2017US008510

PATIENT
  Sex: Female

DRUGS (1)
  1. PONATINIB [Suspect]
     Active Substance: PONATINIB
     Indication: ACUTE LYMPHOCYTIC LEUKAEMIA
     Dosage: 30 MILLIGRAM, QD
     Route: 048
     Dates: start: 201706

REACTIONS (7)
  - Aphonia [Unknown]
  - Pneumonia [Unknown]
  - Product dose omission [Unknown]
  - Cardiac disorder [Unknown]
  - Pneumonia influenzal [Unknown]
  - Myocardial infarction [Unknown]
  - Dysphonia [Unknown]
